FAERS Safety Report 8583780 (Version 2)
Quarter: 2012Q4

REPORT INFORMATION
  Report Type: Report from Study
  Country: CA (occurrence: CA)
  Receive Date: 20120529
  Receipt Date: 20121023
  Transmission Date: 20130627
  Serious: Yes (Death)
  Sender: FDA-Public Use
  Company Number: CA-ROCHE-1072827

PATIENT
  Age: 67 Year
  Sex: Female
  Weight: 51.76 kg

DRUGS (5)
  1. CAPECITABINE [Suspect]
     Indication: METASTASES TO LIVER
     Route: 048
     Dates: start: 20120315, end: 2012
  2. METFORMIN [Concomitant]
  3. PREDNISONE [Concomitant]
  4. MEGESTROL [Concomitant]
  5. TYLENOL [Concomitant]

REACTIONS (1)
  - Malignant neoplasm progression [Fatal]
